FAERS Safety Report 10080417 (Version 3)
Quarter: 2014Q2

REPORT INFORMATION
  Report Type: Report from Study
  Country: US (occurrence: US)
  Receive Date: 20140416
  Receipt Date: 20140428
  Transmission Date: 20141212
  Serious: Yes (Other)
  Sender: FDA-Public Use
  Company Number: US-ROCHE-1350898

PATIENT
  Sex: Female

DRUGS (9)
  1. PEG-INTERFERON ALFA 2A [Suspect]
     Indication: CHRONIC HEPATITIS C
     Route: 058
     Dates: start: 20130222, end: 20130405
  2. PEG-INTERFERON ALFA 2A [Suspect]
     Route: 058
     Dates: start: 20130412, end: 20130419
  3. PEG-INTERFERON ALFA 2A [Suspect]
     Route: 058
     Dates: start: 20130512, end: 20130915
  4. RIBAVIRIN [Suspect]
     Indication: CHRONIC HEPATITIS C
     Dosage: TRADE NAME: REBETOL
     Route: 048
     Dates: start: 20130222, end: 20130222
  5. RIBAVIRIN [Suspect]
     Route: 065
     Dates: start: 20130223, end: 20130919
  6. MK-3034 [Suspect]
     Indication: CHRONIC HEPATITIS C
     Dosage: 4 CAPSULES
     Route: 048
     Dates: start: 20130411, end: 20130917
  7. NEUPOGEN [Suspect]
     Indication: NEUTROPHIL COUNT DECREASED
     Route: 065
     Dates: start: 20130524
  8. BUPRENORPHINE HYDROCHLORIDE/NALOXONE HYDROCHLORIDE [Concomitant]
     Dosage: SUBLINGUAL TABLET
     Route: 065
     Dates: start: 200501
  9. CYANOCOBALAMIN [Concomitant]
     Route: 065
     Dates: start: 20130304

REACTIONS (2)
  - Exposure via father [Unknown]
  - Miscarriage of partner [Unknown]
